FAERS Safety Report 10153218 (Version 1)
Quarter: 2014Q2

REPORT INFORMATION
  Report Type: Spontaneous
  Country: CA (occurrence: CA)
  Receive Date: 20140505
  Receipt Date: 20140505
  Transmission Date: 20141212
  Serious: Yes (Other)
  Sender: FDA-Public Use
  Company Number: CA-BAYER-2014-061658

PATIENT
  Age: 34 Year
  Sex: Female

DRUGS (2)
  1. ACETYLSALICYLIC ACID({=100 MG) [Suspect]
     Indication: PLACENTAL INFARCTION
     Dosage: 81 MG/DAY
     Route: 048
  2. FOLIC ACID [Concomitant]
     Indication: PLACENTAL INFARCTION
     Dosage: 5 MG/DAY

REACTIONS (7)
  - Exposure during pregnancy [None]
  - Drug ineffective for unapproved indication [None]
  - Oligohydramnios [None]
  - Foetal death [None]
  - Placental infarction [None]
  - Foetal growth restriction [None]
  - Oligohydramnios [None]
